FAERS Safety Report 5585524-6 (Version None)
Quarter: 2008Q1

REPORT INFORMATION
  Report Type: 
  Country: None (occurrence: None)
  Receive Date: 20080109
  Receipt Date: 20080107
  Transmission Date: 20080703
  Serious: Yes (Hospitalization)
  Sender: FDA-Public Use
  Company Number: A0702208A

PATIENT
  Age: 32 Year
  Sex: Female
  Weight: 64 kg

DRUGS (4)
  1. SEREVENT [Suspect]
     Indication: ASTHMA
     Dosage: 50MCG UNKNOWN
     Route: 055
     Dates: start: 19980101, end: 19980401
  2. SERETIDE [Suspect]
     Indication: ASTHMA
     Route: 055
     Dates: start: 20040101, end: 20040401
  3. SEREVENT [Suspect]
     Dosage: 25MCG TWICE PER DAY
     Route: 055
     Dates: start: 20060101
  4. BETAMETHASONE [Concomitant]
     Dates: start: 19980101

REACTIONS (5)
  - ASTHMATIC CRISIS [None]
  - DRUG INEFFECTIVE [None]
  - EXPOSURE TO ALLERGEN [None]
  - RENAL PAIN [None]
  - TACHYCARDIA [None]
